FAERS Safety Report 6064524-6 (Version None)
Quarter: 2009Q1

REPORT INFORMATION
  Report Type: 
  Country: None (occurrence: None)
  Receive Date: 20090204
  Receipt Date: 20090130
  Transmission Date: 20090719
  Serious: Yes (Hospitalization)
  Sender: FDA-Public Use
  Company Number: A0757484A

PATIENT
  Age: 33 Year
  Sex: Female
  Weight: 94.1 kg

DRUGS (20)
  1. AVANDIA [Suspect]
     Dosage: 4MG PER DAY
     Route: 048
     Dates: start: 20050224, end: 20070505
  2. GLUCOPHAGE [Concomitant]
  3. METFORMIN [Concomitant]
  4. IMIPRAMINE [Concomitant]
  5. NORVASC [Concomitant]
  6. INSULIN [Concomitant]
  7. AMARYL [Concomitant]
  8. COZAAR [Concomitant]
  9. TRAMADOL HCL [Concomitant]
  10. TOPROL-XL [Concomitant]
  11. WELLBUTRIN XL [Concomitant]
  12. LIPITOR [Concomitant]
  13. ALBUTEROL SULATE [Concomitant]
  14. TOFRANIL [Concomitant]
  15. GLIMEPIRIDE [Concomitant]
  16. ALTACE [Concomitant]
  17. PREDNISONE [Concomitant]
  18. HYDROXYCHLOROQUINE SULFATE [Concomitant]
  19. PROCARDIA XL [Concomitant]
  20. PROTONIX [Concomitant]

REACTIONS (2)
  - MYOCARDIAL INFARCTION [None]
  - MYOCARDIAL ISCHAEMIA [None]
